FAERS Safety Report 7305625-1 (Version None)
Quarter: 2011Q1

REPORT INFORMATION
  Report Type: 
  Country: None (occurrence: None)
  Receive Date: 20110222
  Receipt Date: 20101130
  Transmission Date: 20110831
  Serious: Yes (Other)
  Sender: FDA-Public Use
  Company Number: US-ROCHE-731984

PATIENT
  Age: 12 Year
  Sex: Female
  Weight: 90 kg

DRUGS (5)
  1. RISPERDAL [Concomitant]
  2. COPAXONE [Concomitant]
     Indication: MULTIPLE SCLEROSIS
     Route: 058
  3. BISOPROLOL [Concomitant]
     Dosage: FREQUENCY: 9 AM AND 2 MG HS
     Route: 048
  4. CELLCEPT [Suspect]
     Indication: MULTIPLE SCLEROSIS
     Route: 048
     Dates: start: 20090601
  5. COLACE [Concomitant]
     Indication: CONSTIPATION
     Dosage: FREQUENCY: 9 AM
     Route: 048

REACTIONS (6)
  - SPEECH DISORDER [None]
  - PSYCHOTIC DISORDER [None]
  - MUSCULOSKELETAL STIFFNESS [None]
  - CONSTIPATION [None]
  - EXCORIATION [None]
  - EYE MOVEMENT DISORDER [None]
